FAERS Safety Report 16623628 (Version 1)
Quarter: 2019Q3

REPORT INFORMATION
  Report Type: Spontaneous
  Country: ES (occurrence: ES)
  Receive Date: 20190724
  Receipt Date: 20190724
  Transmission Date: 20191004
  Serious: Yes (Hospitalization)
  Sender: FDA-Public Use
  Company Number: ES-TEVA-2019-ES-1082121

PATIENT
  Age: 89 Year
  Sex: Female

DRUGS (1)
  1. VALSARTAN/HIDROCLOROTIAZIDA 80 MG/12,5 MG COMPRIMIDOS RECUBIERTOS CON [Suspect]
     Active Substance: HYDROCHLOROTHIAZIDE\VALSARTAN
     Indication: HYPERTENSION
     Dosage: .5 DOSAGE FORMS DAILY; 0.5 TABLETS AT BREAKFAST
     Route: 048
     Dates: start: 20180424, end: 20190704

REACTIONS (1)
  - Acute kidney injury [Recovered/Resolved]

NARRATIVE: CASE EVENT DATE: 20190704
